FAERS Safety Report 7984357-0 (Version None)
Quarter: 2011Q4

REPORT INFORMATION
  Report Type: 
  Country: None (occurrence: None)
  Receive Date: 20111216
  Receipt Date: 20111207
  Transmission Date: 20120403
  Serious: Yes (Other)
  Sender: FDA-Public Use
  Company Number: US-JNJFOC-20111203529

PATIENT
  Sex: Male
  Weight: 45.36 kg

DRUGS (6)
  1. CONCERTA [Suspect]
     Route: 048
  2. CONCERTA [Suspect]
     Route: 048
     Dates: start: 20040101
  3. METHYLPHENIDATE HCL [Suspect]
     Indication: ATTENTION DEFICIT/HYPERACTIVITY DISORDER
     Dosage: 36 MG X 2 PER DAY
     Route: 048
     Dates: start: 20111101
  4. CONCERTA [Suspect]
     Dosage: 36 MG X 2 PER DAY
     Route: 048
  5. CONCERTA [Suspect]
     Indication: ATTENTION DEFICIT/HYPERACTIVITY DISORDER
     Dosage: 36 MG X 2 PER DAY
     Route: 048
  6. CONCERTA [Suspect]
     Route: 048

REACTIONS (7)
  - UPPER LIMB FRACTURE [None]
  - FATIGUE [None]
  - ARTHRALGIA [None]
  - AFFECTIVE DISORDER [None]
  - RESTLESSNESS [None]
  - THERAPEUTIC RESPONSE UNEXPECTED WITH DRUG SUBSTITUTION [None]
  - DISTURBANCE IN ATTENTION [None]
